FAERS Safety Report 6585528-0 (Version None)
Quarter: 2010Q1

REPORT INFORMATION
  Report Type: 
  Country: None (occurrence: None)
  Receive Date: 20100217
  Receipt Date: 20100208
  Transmission Date: 20100710
  Serious: Yes (Other)
  Sender: FDA-Public Use
  Company Number: US-JNJFOC-20091200557

PATIENT
  Sex: Female
  Weight: 57.61 kg

DRUGS (10)
  1. REMICADE [Suspect]
     Indication: COLITIS ULCERATIVE
     Route: 042
  2. REMICADE [Suspect]
     Route: 042
  3. REMICADE [Suspect]
     Route: 042
  4. REMICADE [Suspect]
     Route: 042
  5. REMICADE [Suspect]
     Route: 042
  6. REMICADE [Suspect]
     Route: 042
  7. ^VITAMINS^ (NOS) [Concomitant]
     Route: 065
  8. IRON [Concomitant]
     Indication: ANAEMIA
     Route: 065
  9. BALSALAZIDE [Concomitant]
     Indication: COLITIS
     Route: 065
  10. INSULIN [Concomitant]
     Indication: DIABETES MELLITUS
     Route: 065

REACTIONS (9)
  - CHEST PAIN [None]
  - DYSPNOEA [None]
  - ERYTHEMA [None]
  - EYE DISORDER [None]
  - FATIGUE [None]
  - INFUSION RELATED REACTION [None]
  - OROPHARYNGEAL PAIN [None]
  - PYREXIA [None]
  - SWELLING FACE [None]
